FAERS Safety Report 4636480-6 (Version None)
Quarter: 2005Q2

REPORT INFORMATION
  Report Type: 
  Country: None (occurrence: None)
  Receive Date: 20050414
  Receipt Date: 20050414
  Transmission Date: 20051028
  Serious: Yes (Disabling)
  Sender: FDA-Public Use
  Company Number: None

PATIENT
  Age: 39 Year
  Sex: Female
  Weight: 47.1741 kg

DRUGS (2)
  1. LEVAQUIN [Suspect]
     Indication: INFECTION
     Dosage: 500 MG  10 DAYS ORAL
     Route: 048
  2. CIPRO [Suspect]
     Indication: INFECTION
     Dosage: 500 MG 7 DAYS ORAL
     Route: 048

REACTIONS (4)
  - HYPOAESTHESIA [None]
  - IMMOBILE [None]
  - PAIN [None]
  - TENDONITIS [None]
